FAERS Safety Report 19810162 (Version 2)
Quarter: 2024Q1

REPORT INFORMATION
  Report Type: Report from Study
  Country: BR (occurrence: BR)
  Receive Date: 20210909
  Receipt Date: 20240202
  Transmission Date: 20240409
  Serious: Yes (Other)
  Sender: FDA-Public Use
  Company Number: BR-AMGEN-BRASL2020199225

PATIENT
  Age: 59 Year
  Sex: Male

DRUGS (10)
  1. VECTIBIX [Suspect]
     Active Substance: PANITUMUMAB
     Indication: Colorectal cancer metastatic
     Dosage: UNK, EVERY 15 DAYS
     Route: 058
     Dates: start: 202010
  2. VECTIBIX [Suspect]
     Active Substance: PANITUMUMAB
     Dosage: UNK (DOSE LOWERED, EVERY 15 DAYS)
     Route: 058
  3. VECTIBIX [Suspect]
     Active Substance: PANITUMUMAB
     Dosage: UNK, 15 DAYS
     Route: 058
     Dates: start: 20240122
  4. GLIFAGE [Concomitant]
     Active Substance: METFORMIN HYDROCHLORIDE
     Indication: Diabetes mellitus
     Dosage: 2 DOSAGE FORM, BID
  5. GLIFAGE [Concomitant]
     Active Substance: METFORMIN HYDROCHLORIDE
     Dosage: 500 MILLIGRAM, QD (ONE TABLET AT NIGHT)
  6. DOXYCYCLINE [Concomitant]
     Active Substance: DOXYCYCLINE
     Dosage: 100 MILLIGRAM, QD
  7. SPIRULINA ORGANIC [Concomitant]
     Dosage: 1 DOSAGE FORM, QD
  8. DAPAGLIFLOZIN [Concomitant]
     Active Substance: DAPAGLIFLOZIN
     Dosage: UNK UNK, QD (MORNING)
  9. MECICLIN [Concomitant]
     Dosage: 300 MILLIGRAM, QD, ON AN EMPTY STOMACH FOR 30 DAYS
  10. VITAMIN D [Concomitant]
     Active Substance: VITAMIN D NOS
     Dosage: 50000 INTERNATIONAL UNIT, QWK

REACTIONS (13)
  - Metastasis [Recovering/Resolving]
  - Seborrhoeic dermatitis [Recovering/Resolving]
  - Oropharyngeal pain [Unknown]
  - Pain in jaw [Unknown]
  - Burning sensation [Unknown]
  - Sensitive skin [Recovering/Resolving]
  - Dizziness [Unknown]
  - Erythema [Recovering/Resolving]
  - Skin exfoliation [Unknown]
  - Dry skin [Recovering/Resolving]
  - Deformity [Recovering/Resolving]
  - Liver ablation [Recovering/Resolving]
  - Tongue disorder [Recovering/Resolving]

NARRATIVE: CASE EVENT DATE: 20201101
